FAERS Safety Report 21448589 (Version 2)
Quarter: 2022Q4

REPORT INFORMATION
  Report Type: Spontaneous
  Country: US (occurrence: US)
  Receive Date: 20221013
  Receipt Date: 20221123
  Transmission Date: 20230113
  Serious: No
  Sender: FDA-Public Use
  Company Number: US-BRISTOL-MYERS SQUIBB COMPANY-2022-117950

PATIENT
  Age: 58 Year
  Sex: Male
  Weight: 98.88 kg

DRUGS (2)
  1. REVLIMID [Suspect]
     Active Substance: LENALIDOMIDE
     Indication: Follicular lymphoma
     Route: 048
     Dates: start: 20221004
  2. REVLIMID [Suspect]
     Active Substance: LENALIDOMIDE
     Route: 048
     Dates: start: 202211

REACTIONS (6)
  - Fatigue [Unknown]
  - Malaise [Unknown]
  - Headache [Unknown]
  - Decreased appetite [Unknown]
  - Hypertension [Unknown]
  - Insomnia [Unknown]

NARRATIVE: CASE EVENT DATE: 20221009
